FAERS Safety Report 6094843-9 (Version None)
Quarter: 2009Q1

REPORT INFORMATION
  Report Type: 
  Country: None (occurrence: None)
  Receive Date: 20090227
  Receipt Date: 20090217
  Transmission Date: 20090719
  Serious: Yes (Other)
  Sender: FDA-Public Use
  Company Number: US-JNJFOC-20090106756

PATIENT
  Sex: Female
  Weight: 63.5 kg

DRUGS (4)
  1. DOXIL [Suspect]
     Dosage: CYCLE 6
     Route: 042
  2. DOXIL [Suspect]
     Dosage: CYCLE 5
     Route: 042
  3. DOXIL [Suspect]
     Indication: BREAST CANCER
     Dosage: CYCLE 1-4
     Route: 042
  4. NEULASTA [Concomitant]
     Indication: WHITE BLOOD CELL COUNT
     Route: 065

REACTIONS (5)
  - CEREBRAL HAEMORRHAGE [None]
  - DIPLOPIA [None]
  - DIZZINESS [None]
  - RASH [None]
  - RETINAL HAEMORRHAGE [None]
